FAERS Safety Report 4373864-8 (Version None)
Quarter: 2004Q2

REPORT INFORMATION
  Report Type: 
  Country: None (occurrence: None)
  Receive Date: 20040603
  Receipt Date: 20040518
  Transmission Date: 20050107
  Serious: Yes (Other)
  Sender: FDA-Public Use
  Company Number: 235682

PATIENT
  Age: 10 Year
  Sex: Male
  Weight: 24.4 kg

DRUGS (2)
  1. NORDITROPIN SIMPLEX XX (SOMATROPIN) SOLUTION FOR INJECTION [Suspect]
     Indication: GROWTH HORMONE DEFICIENCY
     Dosage: SEE IMAGE
     Route: 058
     Dates: start: 19980501, end: 20001201
  2. NORDITROPIN SIMPLEX XX (SOMATROPIN) SOLUTION FOR INJECTION [Suspect]
     Indication: GROWTH HORMONE DEFICIENCY
     Dosage: SEE IMAGE
     Route: 058
     Dates: start: 20011001

REACTIONS (2)
  - GRANULOMA [None]
  - INSULIN-LIKE GROWTH FACTOR INCREASED [None]
